FAERS Safety Report 19159257 (Version 1)
Quarter: 2021Q2

REPORT INFORMATION
  Report Type: Spontaneous
  Country: JP (occurrence: JP)
  Receive Date: 20210420
  Receipt Date: 20210420
  Transmission Date: 20210717
  Serious: Yes (Hospitalization)
  Sender: FDA-Public Use
  Company Number: JP-DSJP-DSJ-2021-111510

PATIENT
  Age: 64 Year
  Sex: Male
  Weight: 70 kg

DRUGS (6)
  1. FUROSEMIDE. [Concomitant]
     Active Substance: FUROSEMIDE
     Indication: VENTRICULAR HYPOKINESIA
     Dosage: 40MG/DAY
     Route: 042
  2. DOBUTAMINE [Concomitant]
     Active Substance: DOBUTAMINE HYDROCHLORIDE
     Indication: VENTRICULAR HYPOKINESIA
     Dosage: 17.6 MG/HR (4.2 UG/KG/MIN)
     Route: 042
  3. HEPARIN [Concomitant]
     Active Substance: HEPARIN SODIUM
     Indication: VENTRICULAR HYPOKINESIA
     Dosage: 1000 UNITS/DAY
     Route: 042
  4. EFIENT [Suspect]
     Active Substance: PRASUGREL HYDROCHLORIDE
     Indication: THROMBOSIS PROPHYLAXIS
     Dosage: 3.75 MG, QD
     Route: 065
  5. HANP FOR INJECTION 1000 [Suspect]
     Active Substance: CARPERITIDE
     Indication: VENTRICULAR HYPOKINESIA
     Dosage: 0.084 MG/HR (0.02 UG/KG/MIN)
     Route: 042
  6. ASPIRIN                            /00002701/ [Concomitant]
     Active Substance: ASPIRIN
     Indication: THROMBOSIS PROPHYLAXIS
     Dosage: 100MG/DAY
     Route: 065

REACTIONS (1)
  - Embolic stroke [Recovering/Resolving]
